FAERS Safety Report 21023948 (Version 1)
Quarter: 2022Q2

REPORT INFORMATION
  Report Type: Report from Study
  Country: NL (occurrence: NL)
  Receive Date: 20220629
  Receipt Date: 20220629
  Transmission Date: 20220720
  Serious: Yes (Other)
  Sender: FDA-Public Use
  Company Number: NL-UCBSA-2021015924

PATIENT

DRUGS (2)
  1. LEVETIRACETAM [Suspect]
     Active Substance: LEVETIRACETAM
     Indication: Epilepsy
     Dosage: MEDIAN DOSE OF 1500 MG (IQR -1500-2000)
  2. VALPROIC ACID [Suspect]
     Active Substance: VALPROIC ACID
     Indication: Epilepsy
     Dosage: UNKNOWN DOSE

REACTIONS (10)
  - Seizure [Unknown]
  - Hepatic failure [Unknown]
  - Poisoning [Unknown]
  - Agitation [Unknown]
  - Somnolence [Unknown]
  - Fatigue [Unknown]
  - Gastrointestinal disorder [Unknown]
  - Subcutaneous abscess [Unknown]
  - Adverse event [Unknown]
  - Treatment failure [Unknown]
